FAERS Safety Report 9780724 (Version 2)
Quarter: 2014Q1

REPORT INFORMATION
  Report Type: Report from Study
  Country: CZ (occurrence: CZ)
  Receive Date: 20131224
  Receipt Date: 20140110
  Transmission Date: 20141002
  Serious: Yes (Other)
  Sender: FDA-Public Use
  Company Number: CZ-JNJFOC-20131212647

PATIENT
  Age: 32 Year
  Sex: Female

DRUGS (6)
  1. REMICADE [Suspect]
     Indication: COLITIS ULCERATIVE
     Route: 042
  2. CALCIUM/CODEINE [Suspect]
     Indication: DIARRHOEA
     Route: 065
  3. CALTRATE [Concomitant]
     Dosage: ONE TABLESPOON
     Route: 048
  4. VIGANTOL [Concomitant]
     Dosage: AS NEEDED
     Route: 065
  5. PROBIOTICS [Concomitant]
     Route: 065
  6. VITAMINS (NOS) [Concomitant]
     Route: 065

REACTIONS (2)
  - Abortion spontaneous [Unknown]
  - Maternal exposure before pregnancy [Recovered/Resolved]
